FAERS Safety Report 6203755-9 (Version None)
Quarter: 2009Q2

REPORT INFORMATION
  Report Type: 
  Country: None (occurrence: None)
  Receive Date: 20090526
  Receipt Date: 20090526
  Transmission Date: 20091009
  Serious: Yes (Other)
  Sender: FDA-Public Use
  Company Number: None

PATIENT
  Age: 67 Year
  Sex: Male
  Weight: 95.2554 kg

DRUGS (5)
  1. COZAAR [Suspect]
     Indication: HYPERTENSION
     Dosage: 50 MG BID PO
     Route: 048
  2. ACTOS [Concomitant]
  3. OMEPRAZOLE [Concomitant]
  4. METFORMIN HYDROCHLORIDE [Concomitant]
  5. SIMVASTATIN [Concomitant]

REACTIONS (3)
  - MOVEMENT DISORDER [None]
  - NEUROPATHY PERIPHERAL [None]
  - PAIN [None]
